FAERS Safety Report 4480234-0 (Version None)
Quarter: 2004Q4

REPORT INFORMATION
  Report Type: 
  Country: None (occurrence: None)
  Receive Date: 20041020
  Receipt Date: 20041012
  Transmission Date: 20050328
  Serious: Yes (Other)
  Sender: FDA-Public Use
  Company Number: US-MERCK-0410USA01790

PATIENT

DRUGS (2)
  1. VIOXX [Suspect]
     Route: 048
     Dates: start: 20000727, end: 20001001
  2. VIOXX [Suspect]
     Route: 048
     Dates: start: 20001025, end: 20010701

REACTIONS (1)
  - MYOCARDIAL INFARCTION [None]
